FAERS Safety Report 18216125 (Version 1)
Quarter: 2020Q3

REPORT INFORMATION
  Report Type: Spontaneous
  Country: AU (occurrence: AU)
  Receive Date: 20200901
  Receipt Date: 20200901
  Transmission Date: 20201103
  Serious: Yes (Hospitalization)
  Sender: FDA-Public Use
  Company Number: AU-TEVA-2020-AU-1823207

PATIENT
  Age: 70 Year
  Sex: Female
  Weight: 78 kg

DRUGS (7)
  1. ARIPIPRAZOLE. [Suspect]
     Active Substance: ARIPIPRAZOLE
     Route: 065
  2. LORAZEPAM. [Concomitant]
     Active Substance: LORAZEPAM
     Dosage: 2 MILLIGRAM DAILY;
  3. OLANZAPINE. [Suspect]
     Active Substance: OLANZAPINE
     Route: 065
  4. PERINDOPRIL [Concomitant]
     Active Substance: PERINDOPRIL
     Dosage: 5 MILLIGRAM DAILY; EVERY MORNING
  5. GLICLAZIDE 30MG MODIFIED RELEASE [Concomitant]
     Dosage: AT NIGHT
  6. ATORVASTATIN [Concomitant]
     Active Substance: ATORVASTATIN
     Dosage: 10 MILLIGRAM DAILY;
  7. LITHIUM. [Concomitant]
     Active Substance: LITHIUM
     Dosage: 1000 MILLIGRAM DAILY;

REACTIONS (2)
  - Schizophrenia [Unknown]
  - Therapeutic product effect incomplete [Unknown]
